FAERS Safety Report 21313962 (Version 2)
Quarter: 2022Q4

REPORT INFORMATION
  Report Type: Spontaneous
  Country: US (occurrence: None)
  Receive Date: 20220909
  Receipt Date: 20221103
  Transmission Date: 20230113
  Serious: No
  Sender: FDA-Public Use
  Company Number: 2022A285183

PATIENT
  Sex: Female

DRUGS (1)
  1. BYETTA [Suspect]
     Active Substance: EXENATIDE
     Dosage: 250MCG/1.2ML UNKNOWN
     Route: 058

REACTIONS (2)
  - Abdominal discomfort [Recovered/Resolved]
  - Device issue [Unknown]
